FAERS Safety Report 25835495 (Version 1)
Quarter: 2025Q3

REPORT INFORMATION
  Report Type: Other
  Country: EU (occurrence: EU)
  Receive Date: 20250923
  Receipt Date: 20250923
  Transmission Date: 20251020
  Serious: Yes (Hospitalization)
  Sender: ZYDUS PHARM
  Company Number: None

PATIENT

DRUGS (6)
  1. LEVETIRACETAM [Suspect]
     Active Substance: LEVETIRACETAM
     Indication: Metastases to central nervous system
     Route: 048
     Dates: start: 202505
  2. PANTOPRAZOLE [Suspect]
     Active Substance: PANTOPRAZOLE
     Indication: Metastases to central nervous system
     Route: 048
  3. ALECENSA [Suspect]
     Active Substance: ALECTINIB HYDROCHLORIDE
     Indication: Lung adenocarcinoma
     Route: 048
     Dates: start: 20250526, end: 20250819
  4. METFORMIN [Concomitant]
     Active Substance: METFORMIN HYDROCHLORIDE
     Indication: Product used for unknown indication
     Route: 065
  5. ALGINIC ACID\ALUMINUM HYDROXIDE\MAGNESIUM TRISILICATE\SODIUM BICARBONA [Concomitant]
     Active Substance: ALGINIC ACID\ALUMINUM HYDROXIDE\MAGNESIUM TRISILICATE\SODIUM BICARBONATE
     Indication: Product used for unknown indication
     Route: 065
  6. POLYETHYLENE GLYCOLS [Concomitant]
     Active Substance: POLYETHYLENE GLYCOLS
     Indication: Product used for unknown indication
     Route: 065

REACTIONS (3)
  - Eosinophilia [Not Recovered/Not Resolved]
  - Heart failure with reduced ejection fraction [Not Recovered/Not Resolved]
  - Troponin increased [Recovering/Resolving]

NARRATIVE: CASE EVENT DATE: 20250801
